FAERS Safety Report 10010816 (Version 1)
Quarter: 2014Q1

REPORT INFORMATION
  Report Type: Report from Study
  Country: CO (occurrence: CO)
  Receive Date: 20140314
  Receipt Date: 20140314
  Transmission Date: 20141002
  Serious: Yes (Disabling)
  Sender: FDA-Public Use
  Company Number: CO-BAYER-2014-035555

PATIENT
  Age: 59 Year
  Sex: Male

DRUGS (1)
  1. BETAFERON [Suspect]
     Indication: MULTIPLE SCLEROSIS
     Dosage: 250 ?G, QD
     Route: 058

REACTIONS (2)
  - Multiple sclerosis [Unknown]
  - Inappropriate schedule of drug administration [None]
